FAERS Safety Report 24966266 (Version 2)
Quarter: 2025Q2

REPORT INFORMATION
  Report Type: Spontaneous
  Country: CA (occurrence: CA)
  Receive Date: 20250213
  Receipt Date: 20250402
  Transmission Date: 20250717
  Serious: Yes (Hospitalization, Other)
  Sender: SANOFI AVENTIS
  Company Number: CA-SA-2025SA041045

PATIENT
  Age: 2 Year
  Sex: Male
  Weight: 11.71 kg

DRUGS (25)
  1. ALEMTUZUMAB [Suspect]
     Active Substance: ALEMTUZUMAB
     Indication: Bone marrow conditioning regimen
     Route: 042
     Dates: start: 20240104, end: 20240106
  2. BUSULFAN [Suspect]
     Active Substance: BUSULFAN
     Indication: Bone marrow conditioning regimen
     Route: 042
     Dates: start: 20240107, end: 20240108
  3. FLUDARABINE [Suspect]
     Active Substance: FLUDARABINE PHOSPHATE
     Indication: Bone marrow conditioning regimen
     Route: 042
     Dates: start: 20240104, end: 20240108
  4. FAMOTIDINE [Concomitant]
     Active Substance: FAMOTIDINE
     Dates: start: 20240103, end: 20240108
  5. LEVETIRACETAM [Concomitant]
     Active Substance: LEVETIRACETAM
     Route: 065
     Dates: start: 20240103, end: 20240108
  6. MELATONIN [Concomitant]
     Active Substance: MELATONIN
     Dates: start: 20240103, end: 20240108
  7. METHYLPREDNISOLONE [Concomitant]
     Active Substance: METHYLPREDNISOLONE
     Dates: start: 20240103, end: 20240108
  8. MYCAMINE [Concomitant]
     Active Substance: MICAFUNGIN SODIUM
     Dates: start: 20240103, end: 20240108
  9. MYCOPHENOLATE MOFETIL [Concomitant]
     Active Substance: MYCOPHENOLATE MOFETIL
     Dates: start: 20240103, end: 20240108
  10. NIFEDIPINE [Concomitant]
     Active Substance: NIFEDIPINE
     Dates: start: 20240103, end: 20240108
  11. ONDANSETRON [Concomitant]
     Active Substance: ONDANSETRON
     Dates: start: 20240103, end: 20240108
  12. PIPERACILLIN SODIUM\TAZOBACTAM SODIUM [Concomitant]
     Active Substance: PIPERACILLIN SODIUM\TAZOBACTAM SODIUM
     Dates: start: 20240103, end: 20240108
  13. PREDNISONE [Concomitant]
     Active Substance: PREDNISONE
     Dates: start: 20240103, end: 20240108
  14. PRUCALOPRIDE SUCCINATE [Concomitant]
     Active Substance: PRUCALOPRIDE SUCCINATE
     Route: 065
     Dates: start: 20240103, end: 20240108
  15. RELISTOR [Concomitant]
     Active Substance: METHYLNALTREXONE BROMIDE
     Dates: start: 20240103, end: 20240108
  16. SENNOSIDES [Concomitant]
     Active Substance: SENNOSIDES
     Dates: start: 20240103, end: 20240108
  17. SIROLIMUS [Concomitant]
     Active Substance: SIROLIMUS
     Dates: start: 20240103, end: 20240108
  18. TACROLIMUS [Concomitant]
     Active Substance: TACROLIMUS
     Dates: start: 20240103, end: 20240108
  19. CEFAZOLIN [Concomitant]
     Active Substance: CEFAZOLIN
     Dates: start: 20240103, end: 20240108
  20. CETIRIZINE [Concomitant]
     Active Substance: CETIRIZINE HYDROCHLORIDE
     Dates: start: 20240103, end: 20240108
  21. CHLORHEXIDINE [Concomitant]
     Active Substance: CHLORHEXIDINE
     Dates: start: 20240103, end: 20240108
  22. CHOLECALCIFEROL [Concomitant]
     Active Substance: CHOLECALCIFEROL
     Dates: start: 20240103, end: 20240108
  23. CLONIDINE [Concomitant]
     Active Substance: CLONIDINE
     Dates: start: 20240103, end: 20240108
  24. DIPHENHYDRAMINE [Concomitant]
     Active Substance: DIPHENHYDRAMINE
     Dates: start: 20240103, end: 20240108
  25. FLUCONAZOLE [Concomitant]
     Active Substance: FLUCONAZOLE
     Dates: start: 20240103, end: 20240108

REACTIONS (1)
  - Mucosal inflammation [Recovered/Resolved]

NARRATIVE: CASE EVENT DATE: 20240114
